FAERS Safety Report 11423085 (Version 1)
Quarter: 2015Q3

REPORT INFORMATION
  Report Type: Spontaneous
  Country: US (occurrence: None)
  Receive Date: 20150826
  Receipt Date: 20150826
  Transmission Date: 20151125
  Serious: Yes (Other)
  Sender: FDA-Public Use
  Company Number: None

PATIENT
  Age: 47 Year
  Sex: Female
  Weight: 55.34 kg

DRUGS (3)
  1. TOPICAL TRETINOIN [Concomitant]
  2. ORAL DOXYCYCLINE [Concomitant]
  3. TRIAMCINOLONE [Suspect]
     Active Substance: TRIAMCINOLONE
     Indication: ARTHROPOD BITE
     Dosage: UNKNOWN, GIVEN INTO/UNDER THE SKIN
     Dates: start: 20141031, end: 20141031

REACTIONS (3)
  - Drug ineffective [None]
  - Skin discolouration [None]
  - Injection site atrophy [None]

NARRATIVE: CASE EVENT DATE: 20141031
